FAERS Safety Report 9853863 (Version 18)
Quarter: 2015Q4

REPORT INFORMATION
  Report Type: Report from Study
  Country: US (occurrence: US)
  Receive Date: 20140129
  Receipt Date: 20151013
  Transmission Date: 20160305
  Serious: Yes (Hospitalization, Other)
  Sender: FDA-Public Use
  Company Number: US-ALEXION-A201400151

PATIENT
  Age: 62 Year
  Sex: Male

DRUGS (4)
  1. LOVENOX [Concomitant]
     Active Substance: ENOXAPARIN SODIUM
     Indication: ANTICOAGULANT THERAPY
     Dosage: UNK
     Route: 065
     Dates: start: 20140527, end: 20140702
  2. SOLIRIS [Suspect]
     Active Substance: ECULIZUMAB
     Dosage: 900 MG, UNK
     Route: 042
     Dates: start: 20140809
  3. SOLIRIS [Suspect]
     Active Substance: ECULIZUMAB
     Indication: PAROXYSMAL NOCTURNAL HAEMOGLOBINURIA
     Dosage: 900MG, Q2W
     Route: 042
     Dates: start: 20131030
  4. COUMADINE [Concomitant]
     Active Substance: WARFARIN SODIUM
     Indication: ANTICOAGULANT THERAPY
     Dosage: UNK, QD
     Route: 065
     Dates: start: 20130701

REACTIONS (32)
  - Transfusion [Unknown]
  - Hypotension [Unknown]
  - Gait disturbance [Unknown]
  - Discomfort [Unknown]
  - Dehydration [Unknown]
  - Therapeutic response decreased [Unknown]
  - Headache [Unknown]
  - Bone pain [Unknown]
  - Thrombosis [Unknown]
  - Incision site haemorrhage [Unknown]
  - Cyst [Unknown]
  - Peripheral swelling [Unknown]
  - Abdominal distension [Recovering/Resolving]
  - Sepsis [Unknown]
  - Abdominal distension [Not Recovered/Not Resolved]
  - Fatigue [Not Recovered/Not Resolved]
  - Condition aggravated [Not Recovered/Not Resolved]
  - Incisional drainage [Unknown]
  - Blood pressure increased [Unknown]
  - Dysphagia [Not Recovered/Not Resolved]
  - Social stay hospitalisation [Recovered/Resolved]
  - Weight decreased [Unknown]
  - Diarrhoea [Not Recovered/Not Resolved]
  - Stent placement [Unknown]
  - Stent malfunction [Unknown]
  - Skin discolouration [Unknown]
  - Haemoglobinuria [Unknown]
  - Abdominal distension [Not Recovered/Not Resolved]
  - Epistaxis [Unknown]
  - Urticaria [Recovered/Resolved]
  - Haemolysis [Unknown]
  - Nasopharyngitis [Not Recovered/Not Resolved]

NARRATIVE: CASE EVENT DATE: 20140308
